FAERS Safety Report 5066579-4 (Version None)
Quarter: 2006Q3

REPORT INFORMATION
  Report Type: 
  Country: None (occurrence: None)
  Receive Date: 20060717
  Receipt Date: 20050729
  Transmission Date: 20061208
  Serious: Yes (Other)
  Sender: FDA-Public Use
  Company Number: 2005-07-2212

PATIENT
  Sex: Female

DRUGS (4)
  1. INTEGRILIN [Suspect]
     Indication: PERCUTANEOUS CORONARY INTERVENTION
     Dosage: INF INTRAVENOUS
     Route: 042
     Dates: start: 20050701
  2. HEPARIN [Suspect]
     Dosage: INTRAVENOUS
     Route: 042
  3. ASPIRIN [Suspect]
  4. PLAVIX [Suspect]

REACTIONS (2)
  - HAEMORRHAGE [None]
  - THROMBOCYTOPENIA [None]
